FAERS Safety Report 8982967 (Version 1)
Quarter: 2012Q4

REPORT INFORMATION
  Report Type: 
  Country: JP (occurrence: JP)
  Receive Date: 20121221
  Receipt Date: 20121221
  Transmission Date: 20130627
  Serious: Yes (Hospitalization, Other)
  Sender: FDA-Public Use
  Company Number: PHHY2012JP117702

PATIENT
  Age: 2 Month
  Sex: Male

DRUGS (2)
  1. TACROLIMUS [Suspect]
     Indication: PROPHYLAXIS AGAINST GRAFT VERSUS HOST DISEASE
  2. METHOTREXATE [Concomitant]
     Indication: PROPHYLAXIS AGAINST GRAFT VERSUS HOST DISEASE

REACTIONS (11)
  - Food allergy [Recovering/Resolving]
  - Milk allergy [Unknown]
  - Diarrhoea [Unknown]
  - Eosinophilia [Unknown]
  - Blood immunoglobulin E increased [Recovering/Resolving]
  - Malnutrition [Unknown]
  - Weight gain poor [Unknown]
  - Decreased appetite [Unknown]
  - Dehydration [Unknown]
  - Venoocclusive disease [Recovered/Resolved]
  - Acute graft versus host disease in skin [Unknown]
